FAERS Safety Report 16962326 (Version 1)
Quarter: 2019Q4

REPORT INFORMATION
  Report Type: Spontaneous
  Country: US (occurrence: US)
  Receive Date: 20191025
  Receipt Date: 20191025
  Transmission Date: 20200122
  Serious: No
  Sender: FDA-Public Use
  Company Number: US-NOVOPROD-664942

PATIENT
  Age: 67 Year
  Sex: Female
  Weight: 53.52 kg

DRUGS (4)
  1. VAGIFEM [Suspect]
     Active Substance: ESTRADIOL
     Indication: VULVOVAGINAL DISCOMFORT
     Dosage: UNK
     Route: 067
  2. IMVEXXY [Suspect]
     Active Substance: ESTRADIOL
     Indication: VULVOVAGINAL DISCOMFORT
     Dosage: 10 ?G ONCE DAILY, THEN 10 ?G EVERY OTHER DAY, THEN 10 ?G TWICE A WEEK
     Route: 067
     Dates: start: 20190314
  3. VAGIFEM [Suspect]
     Active Substance: ESTRADIOL
     Indication: VULVOVAGINAL PRURITUS
  4. IMVEXXY [Suspect]
     Active Substance: ESTRADIOL
     Indication: VULVOVAGINAL PRURITUS

REACTIONS (5)
  - Headache [Not Recovered/Not Resolved]
  - Vulvovaginal burning sensation [Not Recovered/Not Resolved]
  - Vulvovaginal discomfort [Not Recovered/Not Resolved]
  - Vulvovaginal pruritus [Unknown]
  - Vaginal discharge [Not Recovered/Not Resolved]

NARRATIVE: CASE EVENT DATE: 20190315
